FAERS Safety Report 5249259-1 (Version None)
Quarter: 2007Q1

REPORT INFORMATION
  Report Type: 
  Country: None (occurrence: None)
  Receive Date: 20070223
  Receipt Date: 20070208
  Transmission Date: 20070707
  Serious: Yes (Hospitalization, Other)
  Sender: FDA-Public Use
  Company Number: GXKR2007GB01565

PATIENT
  Age: 81 Year
  Sex: Male
  Weight: 70 kg

DRUGS (8)
  1. NYSTATIN [Suspect]
     Indication: ORAL CANDIDIASIS
     Dosage: 1 ML, QID, ORAL
     Route: 048
     Dates: start: 20070108, end: 20070119
  2. BENZYLPENICILLIN (BENZYLPENICILLIN) [Suspect]
     Indication: ALPHA HAEMOLYTIC STREPTOCOCCAL INFECTION
     Dosage: 1.2 G, QID, INTRAVENOUS
     Route: 042
     Dates: start: 20061231, end: 20070119
  3. CLOPIDOGREL [Concomitant]
  4. CREON (AMYLASE, LIPASE, PANCREATIN, PROTEASE) [Concomitant]
  5. DONEPEZIL HCL [Concomitant]
  6. ESOMEPRAZOLE (ESOMEPRAZOLE) [Concomitant]
  7. QUININE SULFATE [Concomitant]
  8. VENLAFAXINE HCL [Concomitant]

REACTIONS (1)
  - NEUTROPENIA [None]
